FAERS Safety Report 19330285 (Version 8)
Quarter: 2023Q2

REPORT INFORMATION
  Report Type: Spontaneous
  Country: HU (occurrence: HU)
  Receive Date: 20210528
  Receipt Date: 20230523
  Transmission Date: 20230722
  Serious: Yes (Hospitalization, Other)
  Sender: FDA-Public Use
  Company Number: NVSC2021HU117899

PATIENT
  Age: 54 Year
  Sex: Male
  Weight: 78 kg

DRUGS (25)
  1. BISOPROLOL FUMARATE [Suspect]
     Active Substance: BISOPROLOL FUMARATE
     Indication: Supine hypertension
     Dosage: 5 MG, QD (2.5 MG, 2X PER DAY)
     Route: 065
  2. BISOPROLOL FUMARATE [Suspect]
     Active Substance: BISOPROLOL FUMARATE
     Indication: Hypertension
  3. DOXAZOSIN MESYLATE [Suspect]
     Active Substance: DOXAZOSIN MESYLATE
     Indication: Supine hypertension
     Dosage: 4 MG, QD (2 MG, 2X PER DAY)
     Route: 065
  4. DOXAZOSIN MESYLATE [Suspect]
     Active Substance: DOXAZOSIN MESYLATE
     Indication: Hypertension
  5. ROSUVASTATIN CALCIUM [Suspect]
     Active Substance: ROSUVASTATIN CALCIUM
     Indication: Hypercholesterolaemia
     Dosage: 5 MG, QD (IN THE EVENING)
     Route: 065
  6. HYDROCHLOROTHIAZIDE\VALSARTAN [Suspect]
     Active Substance: HYDROCHLOROTHIAZIDE\VALSARTAN
     Indication: Supine hypertension
     Dosage: 92.5 MG (IN THE MORNING 40 MG/6.25 MG, 80MG/12.5 MG IN THE EVENING)
     Route: 065
  7. MYCOPHENOLIC ACID [Suspect]
     Active Substance: MYCOPHENOLIC ACID
     Indication: Renal transplant
     Dosage: 1000 MG, QD (500 MG, 2X PER DAY)
     Route: 065
     Dates: start: 1985
  8. MYCOPHENOLIC ACID [Suspect]
     Active Substance: MYCOPHENOLIC ACID
     Indication: Immunosuppressant drug therapy
  9. MYCOPHENOLIC ACID [Suspect]
     Active Substance: MYCOPHENOLIC ACID
     Indication: Prophylaxis against transplant rejection
  10. PREDNISOLONE [Suspect]
     Active Substance: PREDNISOLONE
     Indication: Renal transplant
     Dosage: 5 MG, QD (IN THE MORNING)
     Route: 065
     Dates: start: 1985
  11. PREDNISOLONE [Suspect]
     Active Substance: PREDNISOLONE
     Indication: Immunosuppressant drug therapy
  12. PREDNISOLONE [Suspect]
     Active Substance: PREDNISOLONE
     Indication: Prophylaxis against transplant rejection
  13. TACROLIMUS [Suspect]
     Active Substance: TACROLIMUS
     Indication: Renal transplant
     Dosage: 2 MG, QD IN THE MORNING
     Route: 065
     Dates: start: 1985
  14. TACROLIMUS [Suspect]
     Active Substance: TACROLIMUS
     Indication: Immunosuppressant drug therapy
  15. TACROLIMUS [Suspect]
     Active Substance: TACROLIMUS
     Indication: Prophylaxis against transplant rejection
  16. FUROSEMIDE [Suspect]
     Active Substance: FUROSEMIDE
     Indication: Supine hypertension
     Dosage: 40 MG, QD (40 MG, 1X PER DAY, IN THE MORNING)
     Route: 065
  17. FUROSEMIDE [Suspect]
     Active Substance: FUROSEMIDE
     Indication: Hypertension
  18. ALLOPURINOL [Suspect]
     Active Substance: ALLOPURINOL
     Indication: Hyperuricaemia
     Dosage: 300 MG, QD (100 MG, 3X PER DAY) (100MG PER Q8H)
     Route: 065
  19. TELMISARTAN AND HYDROCHLOROTHIAZIDE [Suspect]
     Active Substance: HYDROCHLOROTHIAZIDE\TELMISARTAN
     Indication: Supine hypertension
     Dosage: 26.25 MG, BID (2X20/6.25MG)
     Route: 065
  20. TELMISARTAN AND HYDROCHLOROTHIAZIDE [Suspect]
     Active Substance: HYDROCHLOROTHIAZIDE\TELMISARTAN
     Dosage: 1 DF, QD (40 MG/12.5 MG, 1X PER DAY, IN THE MORNING)
     Route: 065
  21. PRAZOSIN HYDROCHLORIDE [Suspect]
     Active Substance: PRAZOSIN HYDROCHLORIDE
     Indication: Supine hypertension
     Dosage: 4 MG, QD (2 MG, 2X PER DAY, 12 H)
     Route: 065
  22. PRAZOSIN HYDROCHLORIDE [Suspect]
     Active Substance: PRAZOSIN HYDROCHLORIDE
     Indication: Hypertension
  23. URAPIDIL HYDROCHLORIDE [Suspect]
     Active Substance: URAPIDIL HYDROCHLORIDE
     Indication: Supine hypertension
     Dosage: 30 MG QD, IN THE MORNING
     Route: 065
  24. URAPIDIL HYDROCHLORIDE [Suspect]
     Active Substance: URAPIDIL HYDROCHLORIDE
     Indication: Hypertension
  25. FAMOTIDINE [Suspect]
     Active Substance: FAMOTIDINE
     Indication: Gastrooesophageal reflux disease
     Dosage: 40 MG, QD IN THE EVENING
     Route: 065

REACTIONS (7)
  - Cardiac autonomic neuropathy [Recovering/Resolving]
  - Supine hypertension [Recovering/Resolving]
  - Blood pressure ambulatory increased [Recovering/Resolving]
  - Non-dipping [Unknown]
  - Hypertonia [Unknown]
  - Back pain [Unknown]
  - Drug ineffective [Unknown]

NARRATIVE: CASE EVENT DATE: 20170101
